FAERS Safety Report 4960615-9 (Version None)
Quarter: 2006Q2

REPORT INFORMATION
  Report Type: 
  Country: None (occurrence: None)
  Receive Date: 20060403
  Receipt Date: 20050926
  Transmission Date: 20061013
  Serious: Yes (Hospitalization)
  Sender: FDA-Public Use
  Company Number: US-MERCK-0509USA03767

PATIENT
  Age: 53 Year
  Sex: Male
  Weight: 82 kg

DRUGS (1)
  1. VIOXX [Suspect]
     Indication: ARTHRITIS
     Route: 048
     Dates: start: 20000505, end: 20001001

REACTIONS (4)
  - BACK PAIN [None]
  - CARDIOVASCULAR DISORDER [None]
  - INTESTINAL FUNCTIONAL DISORDER [None]
  - THROMBOSIS [None]
